FAERS Safety Report 5158166-4 (Version None)
Quarter: 2006Q4

REPORT INFORMATION
  Report Type: 
  Country: None (occurrence: None)
  Receive Date: 20061120
  Receipt Date: 20061120
  Transmission Date: 20070319
  Serious: Yes (Life-Threatening, Hospitalization)
  Sender: FDA-Public Use
  Company Number: None

PATIENT
  Age: 66 Year
  Sex: Male

DRUGS (12)
  1. VALTREX [Suspect]
     Indication: HERPES ZOSTER
     Dosage: 500 MG TID PO
     Route: 048
  2. SOLU-MEDROL [Concomitant]
  3. OXYCODONE HCL [Concomitant]
  4. ASPIRIN [Concomitant]
  5. GABAPENTIN [Concomitant]
  6. ZESTRIL [Concomitant]
  7. COZAAR [Concomitant]
  8. TENORMIN [Concomitant]
  9. LIPITOR [Concomitant]
  10. PLENDIL [Concomitant]
  11. ALLOPURINOL [Concomitant]
  12. LASIX [Concomitant]

REACTIONS (1)
  - RENAL FAILURE ACUTE [None]
